FAERS Safety Report 6052881-6 (Version None)
Quarter: 2009Q1

REPORT INFORMATION
  Report Type: 
  Country: None (occurrence: None)
  Receive Date: 20090127
  Receipt Date: 20080603
  Transmission Date: 20090719
  Serious: No
  Sender: FDA-Public Use
  Company Number: US-ABBOTT-08P-163-0454764-00

PATIENT
  Sex: Male

DRUGS (1)
  1. LUPRON DEPOT [Suspect]
     Indication: PROSTATE CANCER
     Route: 030
     Dates: start: 20060101

REACTIONS (5)
  - ASTHENIA [None]
  - BALANCE DISORDER [None]
  - MENTAL STATUS CHANGES [None]
  - MUSCLE ATROPHY [None]
  - PERNICIOUS ANAEMIA [None]
